FAERS Safety Report 17945190 (Version 1)
Quarter: 2020Q2

REPORT INFORMATION
  Report Type: Spontaneous
  Country: US (occurrence: US)
  Receive Date: 20200625
  Receipt Date: 20200625
  Transmission Date: 20200714
  Serious: No
  Sender: FDA-Public Use
  Company Number: US-SHIRE-US202020665

PATIENT
  Sex: Female

DRUGS (1)
  1. MOTEGRITY [Suspect]
     Active Substance: PRUCALOPRIDE SUCCINATE
     Indication: PRODUCT USED FOR UNKNOWN INDICATION
     Dosage: UNK, UNKNOWN, TAKEN ONLY ONCE
     Route: 065
     Dates: start: 20200619, end: 20200619

REACTIONS (5)
  - Dyspnoea [Unknown]
  - Insomnia [Unknown]
  - Migraine [Unknown]
  - Flushing [Unknown]
  - Bedridden [Unknown]
